FAERS Safety Report 4316649-0 (Version None)
Quarter: 2004Q1

REPORT INFORMATION
  Report Type: 
  Country: None (occurrence: None)
  Receive Date: 20040312
  Receipt Date: 20040305
  Transmission Date: 20041129
  Serious: Yes (Death)
  Sender: FDA-Public Use
  Company Number: 7554

PATIENT
  Age: 64 Year
  Sex: Male

DRUGS (3)
  1. AMIODARONE HCL [Suspect]
     Indication: ATRIAL FIBRILLATION
     Dosage: NI; IV
     Route: 042
  2. AMIODARONE HCL [Suspect]
     Indication: CARDIOMYOPATHY
     Dosage: NI; IV
     Route: 042
  3. VERAPAMIL [Concomitant]

REACTIONS (5)
  - CARDIAC ARREST [None]
  - CARDIOGENIC SHOCK [None]
  - HEPATITIS ACUTE [None]
  - METABOLIC ACIDOSIS [None]
  - RENAL IMPAIRMENT [None]
